FAERS Safety Report 5829887-2 (Version None)
Quarter: 2008Q3

REPORT INFORMATION
  Report Type: 
  Country: None (occurrence: None)
  Receive Date: 20080729
  Receipt Date: 20080710
  Transmission Date: 20090109
  Serious: Yes (Hospitalization)
  Sender: FDA-Public Use
  Company Number: WSDF_00671

PATIENT
  Age: 82 Year
  Sex: Female
  Weight: 65.7716 kg

DRUGS (1)
  1. WINRHO SDF [Suspect]
     Indication: IDIOPATHIC THROMBOCYTOPENIC PURPURA
     Dosage: 45.5 ?G/KG ONCE IV
     Route: 042
     Dates: start: 20070820, end: 20070820

REACTIONS (3)
  - ANAEMIA [None]
  - ANTIBODY TEST POSITIVE [None]
  - PLATELET COUNT DECREASED [None]
